FAERS Safety Report 12236543 (Version 6)
Quarter: 2020Q2

REPORT INFORMATION
  Report Type: Report from Study
  Country: AR (occurrence: AR)
  Receive Date: 20160405
  Receipt Date: 20200406
  Transmission Date: 20200713
  Serious: Yes (Hospitalization, Other)
  Sender: FDA-Public Use
  Company Number: AR-ROCHE-1632687

PATIENT
  Age: 46 Year
  Sex: Male

DRUGS (18)
  1. XOLAIR [Suspect]
     Active Substance: OMALIZUMAB
     Dosage: UNK
     Route: 065
     Dates: start: 2011, end: 201506
  2. XOLAIR [Suspect]
     Active Substance: OMALIZUMAB
     Dosage: 5 MONTHLY
     Route: 065
     Dates: start: 2013, end: 201506
  3. XOLAIR [Suspect]
     Active Substance: OMALIZUMAB
     Dosage: 150 MG, (5 MONTHLY)
     Route: 065
     Dates: start: 201602
  4. XOLAIR [Suspect]
     Active Substance: OMALIZUMAB
     Dosage: 150 MG, (5 MONTHLY)
     Route: 065
     Dates: start: 2010
  5. MONTELUKAST [Concomitant]
     Active Substance: MONTELUKAST SODIUM
  6. XOLAIR [Suspect]
     Active Substance: OMALIZUMAB
     Dosage: 150 MG, (5 MONTHLY)
     Route: 065
     Dates: start: 201509
  7. XOLAIR [Suspect]
     Active Substance: OMALIZUMAB
     Dosage: UNK
     Route: 065
     Dates: start: 20180528
  8. XOLAIR [Suspect]
     Active Substance: OMALIZUMAB
     Dosage: UNK
     Route: 065
     Dates: start: 20200303
  9. FLUTICASONE PROPIONATE. [Concomitant]
     Active Substance: FLUTICASONE PROPIONATE
  10. FLUTICASONE. [Concomitant]
     Active Substance: FLUTICASONE
  11. XOLAIR [Suspect]
     Active Substance: OMALIZUMAB
     Dosage: UNK
     Route: 065
     Dates: start: 20180514
  12. ESOMEPRAZOLE. [Concomitant]
     Active Substance: ESOMEPRAZOLE MAGNESIUM
  13. SALBUTAMOL [Concomitant]
     Active Substance: ALBUTEROL
  14. PANTOPRAZOLE [Concomitant]
     Active Substance: PANTOPRAZOLE
     Indication: GASTROOESOPHAGEAL REFLUX DISEASE
     Dosage: 40 MG, QD
     Route: 065
  15. XOLAIR [Suspect]
     Active Substance: OMALIZUMAB
     Dosage: UNK
     Route: 065
     Dates: start: 20200218
  16. XOLAIR [Suspect]
     Active Substance: OMALIZUMAB
     Indication: ASTHMA
     Dosage: 5 DF, QMO
     Route: 058
     Dates: start: 2011
  17. XOLAIR [Suspect]
     Active Substance: OMALIZUMAB
     Dosage: 150 MG, UNK
     Route: 065
     Dates: start: 201510
  18. SERETIDE [Concomitant]
     Active Substance: FLUTICASONE PROPIONATE\SALMETEROL XINAFOATE
     Indication: ASTHMA
     Dosage: UNK, QD
     Route: 065

REACTIONS (20)
  - Amnesia [Unknown]
  - Dizziness [Recovering/Resolving]
  - Gastrooesophageal reflux disease [Recovered/Resolved]
  - Dyspnoea [Recovering/Resolving]
  - Hypotension [Unknown]
  - Muscular weakness [Recovering/Resolving]
  - Cerebrovascular accident [Recovering/Resolving]
  - Fall [Unknown]
  - Feeling abnormal [Not Recovered/Not Resolved]
  - Muscle spasms [Not Recovered/Not Resolved]
  - Chest pain [Recovering/Resolving]
  - General physical health deterioration [Unknown]
  - Vision blurred [Unknown]
  - Agitation [Not Recovered/Not Resolved]
  - Weight decreased [Recovering/Resolving]
  - Hyperhidrosis [Unknown]
  - Headache [Not Recovered/Not Resolved]
  - Syncope [Unknown]
  - Stress [Recovered/Resolved]
  - Hiatus hernia [Not Recovered/Not Resolved]

NARRATIVE: CASE EVENT DATE: 2015
